FAERS Safety Report 4490631-5 (Version None)
Quarter: 2004Q4

REPORT INFORMATION
  Report Type: 
  Country: None (occurrence: None)
  Receive Date: 20041028
  Receipt Date: 20041018
  Transmission Date: 20050328
  Serious: Yes (Congenital Anomaly)
  Sender: FDA-Public Use
  Company Number: 2004-DE-05538GD

PATIENT
  Sex: Male

DRUGS (4)
  1. ACETAMINOPHEN [Suspect]
     Dosage: IU
     Route: 015
  2. BISOPROLOL FUMARATE [Suspect]
     Dosage: IU
     Route: 015
  3. NAPROXEN [Suspect]
     Dosage: IU
     Route: 015
  4. SUMATRIPTAN (SUMATRIPTAN) [Suspect]
     Dosage: IU
     Route: 015

REACTIONS (9)
  - BREECH PRESENTATION [None]
  - CAESAREAN SECTION [None]
  - CLEFT LIP AND PALATE [None]
  - CONGENITAL FOOT MALFORMATION [None]
  - DRUG EXPOSURE DURING PREGNANCY [None]
  - FACIAL DYSMORPHISM [None]
  - HYPERTELORISM OF ORBIT [None]
  - MONOPARESIS [None]
  - PARESIS [None]
